FAERS Safety Report 22280802 (Version 1)
Quarter: 2023Q2

REPORT INFORMATION
  Report Type: Report from Study
  Country: US (occurrence: US)
  Receive Date: 20230503
  Receipt Date: 20230503
  Transmission Date: 20230721
  Serious: Yes (Life-Threatening, Hospitalization, Other)
  Sender: FDA-Public Use
  Company Number: US-RPC-1063-MS-001-1251003-20210909-0009SG

PATIENT
  Age: 38 Year
  Sex: Female
  Weight: 75 kg

DRUGS (20)
  1. ALEMTUZUMAB [Suspect]
     Active Substance: ALEMTUZUMAB
     Indication: Product used for unknown indication
     Route: 042
     Dates: start: 20210726, end: 20210730
  2. BIOTIN [Concomitant]
     Active Substance: BIOTIN
     Indication: Prophylaxis
     Dosage: 1 CAPSULE X 1 X 1 DAYS
     Route: 048
     Dates: start: 202006
  3. TYLENOL [Concomitant]
     Active Substance: ACETAMINOPHEN
     Indication: Prophylaxis
     Dosage: FREQUENCY TEXT: PRN?500 MG X PRN
     Route: 048
     Dates: start: 202007
  4. ARMODAFINIL [Concomitant]
     Active Substance: ARMODAFINIL
     Indication: Fatigue
     Dosage: 250 MG X 1 X 1 DAYS
     Route: 048
     Dates: start: 20200304
  5. CITRACAL [CALCIUM;COLECALCIFEROL] [Concomitant]
     Indication: Prophylaxis
     Dosage: 3 CAPSULE X 1 X 1 DAYS
     Route: 048
     Dates: start: 20201018
  6. DULOXETINE HYDROCHLORIDE [Concomitant]
     Active Substance: DULOXETINE HYDROCHLORIDE
     Indication: Depression
     Dosage: 30 MG X 2 X 1 DAYS
     Route: 048
     Dates: start: 20210617
  7. GINGER [Concomitant]
     Active Substance: GINGER
     Indication: Vertigo
     Dosage: FREQUENCY TEXT: PRN?500 MG X PRN
     Route: 048
     Dates: start: 20200422, end: 20210801
  8. VITAMINS [Concomitant]
     Active Substance: VITAMINS
     Indication: Prophylaxis
     Dosage: 1 TABLET X 1 X 1 DAYS
     Route: 048
     Dates: start: 20201018
  9. ONDANSETRON HYDROCHLORIDE [Concomitant]
     Active Substance: ONDANSETRON HYDROCHLORIDE
     Indication: Nausea
     Dosage: FREQUENCY TEXT: PRN?4 MG X PRN
     Route: 048
     Dates: start: 20200709
  10. OXCARBAZEPINE [Concomitant]
     Active Substance: OXCARBAZEPINE
     Indication: Neuralgia
     Dosage: 300-600 MG X 2 X 1 DAYS
     Route: 048
     Dates: start: 20200522
  11. PROBIOTICS NOS [Concomitant]
     Active Substance: PROBIOTICS NOS
     Indication: Prophylaxis
     Dosage: 2 CAPSULE X 1 X 1 DAYS
     Route: 048
     Dates: start: 20201018
  12. TIZANIDINE HYDROCHLORIDE [Concomitant]
     Active Substance: TIZANIDINE HYDROCHLORIDE
     Indication: Muscle spasms
     Dosage: 4 MG X 3 X 1 DAYS
     Route: 048
     Dates: start: 20190118
  13. TRAMADOL [Concomitant]
     Active Substance: TRAMADOL
     Indication: Neuralgia
     Dosage: 50 MG X 3 X 1 DAYS
     Route: 048
     Dates: start: 20210617
  14. VITAMIN D3 [Concomitant]
     Active Substance: CHOLECALCIFEROL
     Indication: Vitamin D deficiency
     Dosage: 5,000 IU X 1 X 1 DAYS
     Route: 048
     Dates: start: 20200318
  15. EPINEPHRINE [Concomitant]
     Active Substance: EPINEPHRINE
     Indication: Prophylaxis
     Route: 048
     Dates: start: 20140915
  16. GLYCOPYRROLATE [Concomitant]
     Active Substance: GLYCOPYRROLATE
     Indication: Nausea
     Route: 048
     Dates: start: 20210729
  17. PREGABALIN [Concomitant]
     Active Substance: PREGABALIN
     Indication: Neuralgia
     Route: 048
     Dates: start: 20210617
  18. PREGABALIN [Concomitant]
     Active Substance: PREGABALIN
     Dosage: 150 MG X 3 X 1 DAYS
     Route: 048
     Dates: start: 20200522
  19. PROMETHAZINE [Concomitant]
     Active Substance: PROMETHAZINE HYDROCHLORIDE
     Indication: Nausea
     Route: 048
     Dates: start: 20210730
  20. CALCIUM CITRATE [Concomitant]
     Active Substance: CALCIUM CITRATE
     Indication: Prophylaxis
     Dosage: 3 CAPSULE X 1 X 1 DAYS
     Route: 048
     Dates: start: 20201018

REACTIONS (3)
  - Sepsis [Recovered/Resolved]
  - COVID-19 [Recovered/Resolved]
  - Pneumonia [Recovered/Resolved]

NARRATIVE: CASE EVENT DATE: 20210819
